FAERS Safety Report 8207550-0 (Version None)
Quarter: 2012Q1

REPORT INFORMATION
  Report Type: 
  Country: None (occurrence: None)
  Receive Date: 20120313
  Receipt Date: 20120313
  Transmission Date: 20120608
  Serious: Yes (Hospitalization)
  Sender: FDA-Public Use
  Company Number: None

PATIENT
  Age: 70 Year
  Sex: Male
  Weight: 139.6 kg

DRUGS (2)
  1. CARVEDILOL [Suspect]
     Indication: CARDIAC FAILURE CONGESTIVE
     Dosage: 25 MG BID PO
     Route: 048
     Dates: start: 20100416, end: 20120307
  2. HYDRALAZINE HCL [Suspect]
     Indication: CARDIAC FAILURE CONGESTIVE
     Dosage: 25 MG TID PO
     Route: 048
     Dates: start: 20111207, end: 20120307

REACTIONS (1)
  - HYPOTENSION [None]
